FAERS Safety Report 4346455-2 (Version None)
Quarter: 2004Q2

REPORT INFORMATION
  Report Type: 
  Country: None (occurrence: None)
  Receive Date: 20040426
  Receipt Date: 20030317
  Transmission Date: 20050107
  Serious: No
  Sender: FDA-Public Use
  Company Number: US-BRISTOL-MYERS SQUIBB COMPANY-12214318

PATIENT
  Sex: Female
  Weight: 88 kg

DRUGS (4)
  1. CARBOPLATIN [Suspect]
     Indication: SMALL CELL LUNG CANCER STAGE UNSPECIFIED
     Dosage: INITIAL DOSE ON 24-APR-2002
     Route: 042
     Dates: start: 20030312, end: 20030312
  2. LORAZEPAM [Concomitant]
     Indication: PREMEDICATION
     Dates: start: 20030312
  3. ANZEMET [Concomitant]
     Indication: PREMEDICATION
     Dates: start: 20030312
  4. DECADRON [Concomitant]
     Indication: PREMEDICATION
     Dates: start: 20030313

REACTIONS (6)
  - BLOOD PRESSURE INCREASED [None]
  - DYSPNOEA [None]
  - ERYTHEMA [None]
  - HEART RATE INCREASED [None]
  - OXYGEN SATURATION DECREASED [None]
  - WHEEZING [None]
